FAERS Safety Report 17659323 (Version 1)
Quarter: 2020Q2

REPORT INFORMATION
  Report Type: Spontaneous
  Country: DE (occurrence: DE)
  Receive Date: 20200413
  Receipt Date: 20200413
  Transmission Date: 20200713
  Serious: Yes (Congenital Anomaly, Other)
  Sender: FDA-Public Use
  Company Number: DE-SUN PHARMACEUTICAL INDUSTRIES LTD-2020RR-243664

PATIENT
  Age: 1 Day
  Sex: Male
  Weight: 3.38 kg

DRUGS (1)
  1. CITALOPRAM [Suspect]
     Active Substance: CITALOPRAM HYDROBROMIDE
     Indication: POST-TRAUMATIC STRESS DISORDER
     Dosage: 20 MILLIGRAM, DAILY
     Route: 064
     Dates: start: 20181207, end: 20190819

REACTIONS (4)
  - Myoclonus [Recovered/Resolved]
  - Cryptorchism [Unknown]
  - Hypertonia neonatal [Recovered/Resolved]
  - Tremor neonatal [Recovered/Resolved]

NARRATIVE: CASE EVENT DATE: 20190819
